FAERS Safety Report 7783434-7 (Version None)
Quarter: 2011Q3

REPORT INFORMATION
  Report Type: 
  Country: None (occurrence: None)
  Receive Date: 20110928
  Receipt Date: 20110928
  Transmission Date: 20111222
  Serious: Yes (Other)
  Sender: FDA-Public Use
  Company Number: None

PATIENT
  Age: 86 Year
  Sex: Female
  Weight: 58.059 kg

DRUGS (1)
  1. FERAHEME [Suspect]
     Indication: ANAEMIA
     Dosage: 510 MG
     Route: 042
     Dates: start: 20110922, end: 20110922

REACTIONS (2)
  - INFUSION SITE REACTION [None]
  - INFUSION SITE DISCOLOURATION [None]
